FAERS Safety Report 7902011-8 (Version None)
Quarter: 2011Q4

REPORT INFORMATION
  Report Type: 
  Country: None (occurrence: None)
  Receive Date: 20111108
  Receipt Date: 20111102
  Transmission Date: 20120403
  Serious: Yes (Hospitalization)
  Sender: FDA-Public Use
  Company Number: US-GLAXOSMITHKLINE-A0947827A

PATIENT
  Age: 60 Year
  Sex: Female

DRUGS (3)
  1. COUMADIN [Concomitant]
  2. FLOLAN [Suspect]
     Dosage: 36NGKM UNKNOWN
     Route: 065
     Dates: start: 19990927
  3. REVATIO [Concomitant]

REACTIONS (3)
  - INFECTION [None]
  - EYE OPERATION [None]
  - ADVERSE EVENT [None]
